FAERS Safety Report 16403398 (Version 1)
Quarter: 2019Q2

REPORT INFORMATION
  Report Type: Spontaneous
  Country: US (occurrence: US)
  Receive Date: 20190501
  Receipt Date: 20190501
  Transmission Date: 20190711
  Serious: No
  Sender: FDA-Public Use
  Company Number: None

PATIENT
  Age: 49 Year
  Sex: Male

DRUGS (3)
  1. OMEPRAZOLE. [Concomitant]
     Active Substance: OMEPRAZOLE
  2. IBUPROFEN. [Concomitant]
     Active Substance: IBUPROFEN
  3. TENOFOVIR DF 300MG TAB (X30) [Suspect]
     Active Substance: TENOFOVIR
     Indication: HEPATITIS B
     Dates: start: 201804

REACTIONS (1)
  - Joint swelling [None]

NARRATIVE: CASE EVENT DATE: 20190501
